FAERS Safety Report 4902309-1 (Version None)
Quarter: 2006Q1

REPORT INFORMATION
  Report Type: 
  Country: None (occurrence: None)
  Receive Date: 20060202
  Receipt Date: 20060202
  Transmission Date: 20060701
  Serious: Yes (Other)
  Sender: FDA-Public Use
  Company Number: None

PATIENT
  Sex: Female
  Weight: 78.2 kg

DRUGS (2)
  1. DOXORUBICIN HCL [Suspect]
     Indication: BREAST CANCER
     Dosage: SEE IMAGE
     Dates: start: 20050106
  2. CYCLOPHOSPHAMIDE [Suspect]
     Dosage: SEE IMAGE
     Dates: start: 20050106

REACTIONS (1)
  - WHITE BLOOD CELL COUNT DECREASED [None]
